FAERS Safety Report 4705266-6 (Version None)
Quarter: 2005Q2

REPORT INFORMATION
  Report Type: 
  Country: None (occurrence: None)
  Receive Date: 20050629
  Receipt Date: 20050620
  Transmission Date: 20051028
  Serious: Yes (Death, Hospitalization)
  Sender: FDA-Public Use
  Company Number: GXKR2005US01246

PATIENT
  Age: 61 Year
  Sex: Male

DRUGS (7)
  1. DEXAMETHASONE [Suspect]
     Indication: LYMPHOCYTIC LEUKAEMIA
     Dosage: 40 MG, ORAL
     Route: 048
     Dates: start: 20031028, end: 20040217
  2. DOXORUBICIN (DOXORUBICIN) [Suspect]
     Indication: LYMPHOCYTIC LEUKAEMIA
     Dosage: 50 MG/M2, INTRAVNEOUS
     Route: 042
     Dates: start: 20031028
  3. CYCLOPHOSPHAMIDE [Suspect]
     Indication: LYMPHOCYTIC LEUKAEMIA
     Dosage: 600 MG/M2, INTRAVENOUS
     Route: 042
     Dates: start: 20031028
  4. METHOTREXATE [Suspect]
     Indication: LYMPHOCYTIC LEUKAEMIA
     Dosage: 1G/M2, INTRAVENOUS
     Route: 042
     Dates: start: 20031118
  5. CYTARABINE [Suspect]
     Indication: LYMPHOCYTIC LEUKAEMIA
     Dosage: 6 G/M2, INTRAVNEOUS
     Route: 042
     Dates: start: 20031119
  6. VINCRISTINE [Suspect]
     Dosage: 2 MG, INTRAVENOUS
     Route: 042
     Dates: start: 20031031
  7. LEUCOVORIN CALCIUM [Suspect]
     Dates: start: 20031119

REACTIONS (6)
  - ANAEMIA [None]
  - BACTERIAL SEPSIS [None]
  - FEBRILE NEUTROPENIA [None]
  - LEUKAEMIA RECURRENT [None]
  - THROMBOCYTOPENIA [None]
  - UNRESPONSIVE TO PAIN STIMULI [None]
